FAERS Safety Report 5850834-1 (Version None)
Quarter: 2008Q3

REPORT INFORMATION
  Report Type: 
  Country: None (occurrence: None)
  Receive Date: 20080819
  Receipt Date: 20080819
  Transmission Date: 20090109
  Serious: Yes (Disabling)
  Sender: FDA-Public Use
  Company Number: None

PATIENT
  Age: 24 Year
  Sex: Female
  Weight: 100.2449 kg

DRUGS (2)
  1. SPRINTEC [Suspect]
     Indication: CONTRACEPTION
     Dosage: 1 PILL EVERYDAY PO
     Route: 048
     Dates: start: 20050115, end: 20080812
  2. SPRINTEC [Suspect]
     Indication: MENSTRUATION IRREGULAR
     Dosage: 1 PILL EVERYDAY PO
     Route: 048
     Dates: start: 20050115, end: 20080812

REACTIONS (2)
  - INTRACRANIAL PRESSURE INCREASED [None]
  - PAPILLOEDEMA [None]
